FAERS Safety Report 24438682 (Version 2)
Quarter: 2024Q4

REPORT INFORMATION
  Report Type: Spontaneous
  Country: US (occurrence: US)
  Receive Date: 20241015
  Receipt Date: 20241021
  Transmission Date: 20250115
  Serious: Yes (Disabling, Other)
  Sender: SANOFI AVENTIS
  Company Number: US-SA-2024SA292352

PATIENT
  Age: 58 Year
  Sex: Female

DRUGS (3)
  1. PLAVIX [Suspect]
     Active Substance: CLOPIDOGREL BISULFATE
     Dosage: UNK
  2. ASPIRIN [Suspect]
     Active Substance: ASPIRIN
     Dosage: UNK
  3. HEPARIN [Suspect]
     Active Substance: HEPARIN SODIUM
     Dosage: UNK

REACTIONS (6)
  - Orbital haematoma [Recovering/Resolving]
  - Eye pain [Recovering/Resolving]
  - Mydriasis [Recovering/Resolving]
  - Exophthalmos [Recovering/Resolving]
  - Blindness transient [Not Recovered/Not Resolved]
  - Orbital compartment syndrome [Not Recovered/Not Resolved]
